FAERS Safety Report 5527015-4 (Version None)
Quarter: 2007Q4

REPORT INFORMATION
  Report Type: 
  Country: None (occurrence: None)
  Receive Date: 20071127
  Receipt Date: 20071119
  Transmission Date: 20080405
  Serious: Yes (Other)
  Sender: FDA-Public Use
  Company Number: GB-PFIZER INC-2007097724

PATIENT
  Age: 25 Year
  Sex: Female
  Weight: 53.1 kg

DRUGS (4)
  1. SULFASALAZINE [Suspect]
     Indication: ARTHRITIS
     Route: 048
     Dates: start: 20071022, end: 20071022
  2. FLUDROCORTISONE ACETATE [Concomitant]
     Route: 048
  3. HYDROCORTISONE [Concomitant]
     Route: 048
  4. LEVOTHYROXINE SODIUM [Concomitant]
     Route: 048

REACTIONS (4)
  - ABDOMINAL PAIN [None]
  - DYSPNOEA [None]
  - PYREXIA [None]
  - RASH [None]
